FAERS Safety Report 23441419 (Version 2)
Quarter: 2024Q1

REPORT INFORMATION
  Report Type: Spontaneous
  Country: GB (occurrence: GB)
  Receive Date: 20240125
  Receipt Date: 20240126
  Transmission Date: 20240410
  Serious: Yes (Other)
  Sender: FDA-Public Use
  Company Number: GB-ALLERGAN-2239908US

PATIENT

DRUGS (1)
  1. BOTOX [Suspect]
     Active Substance: ONABOTULINUMTOXINA
     Indication: Neurogenic bladder
     Dosage: TIME INTERVAL: AS NECESSARY: DOSE DESC: UNK, SINGLE
     Route: 065

REACTIONS (2)
  - Subarachnoid haemorrhage [Unknown]
  - Asthenia [Unknown]

NARRATIVE: CASE EVENT DATE: 20221001
